FAERS Safety Report 11709666 (Version 1)
Quarter: 2015Q4

REPORT INFORMATION
  Report Type: Spontaneous
  Country: US (occurrence: US)
  Receive Date: 20151104
  Receipt Date: 20151104
  Transmission Date: 20160304
  Serious: No
  Sender: FDA-Public Use
  Company Number: US-ELI_LILLY_AND_COMPANY-US201103007633

PATIENT
  Age: 64 Year
  Sex: Female

DRUGS (2)
  1. CALCIUM [Concomitant]
     Active Substance: CALCIUM
  2. FORTEO [Suspect]
     Active Substance: TERIPARATIDE
     Indication: OSTEOPOROSIS
     Dosage: 20 UG, QD
     Dates: start: 20100816

REACTIONS (5)
  - Headache [Recovered/Resolved]
  - Injection site dryness [Unknown]
  - Headache [Unknown]
  - Bone density abnormal [Unknown]
  - Psychomotor hyperactivity [Unknown]

NARRATIVE: CASE EVENT DATE: 201010
